FAERS Safety Report 22042622 (Version 1)
Quarter: 2023Q1

REPORT INFORMATION
  Report Type: Other
  Country: IT (occurrence: None)
  Receive Date: 20230228
  Receipt Date: 20230228
  Transmission Date: 20230418
  Serious: No
  Sender: FDA-Public Use
  Company Number: IT-ROCHE-3293506

PATIENT
  Age: 52 Year
  Sex: Female
  Weight: 48 kg

DRUGS (32)
  1. OCRELIZUMAB [Suspect]
     Active Substance: OCRELIZUMAB
     Indication: Relapsing-remitting multiple sclerosis
     Dosage: 12/OCT/2020
     Route: 042
     Dates: start: 20200928, end: 20200928
  2. OCRELIZUMAB [Suspect]
     Active Substance: OCRELIZUMAB
     Route: 042
     Dates: start: 20211026, end: 20211026
  3. OCRELIZUMAB [Suspect]
     Active Substance: OCRELIZUMAB
     Route: 042
     Dates: start: 20221121, end: 20221121
  4. OCRELIZUMAB [Suspect]
     Active Substance: OCRELIZUMAB
     Route: 042
     Dates: start: 20210414, end: 20210414
  5. OCRELIZUMAB [Suspect]
     Active Substance: OCRELIZUMAB
     Route: 042
     Dates: start: 20220518, end: 20220518
  6. FLUCONAZOLE [Concomitant]
     Active Substance: FLUCONAZOLE
     Route: 048
     Dates: start: 20210401, end: 20210412
  7. TIZANIDINE HYDROCHLORIDE [Concomitant]
     Active Substance: TIZANIDINE HYDROCHLORIDE
     Route: 048
     Dates: start: 20210716, end: 20210727
  8. ACETAMINOPHEN\CODEINE PHOSPHATE [Concomitant]
     Active Substance: ACETAMINOPHEN\CODEINE PHOSPHATE
     Route: 048
     Dates: start: 20210716, end: 20210723
  9. ACETAMINOPHEN\CODEINE PHOSPHATE [Concomitant]
     Active Substance: ACETAMINOPHEN\CODEINE PHOSPHATE
     Route: 048
     Dates: start: 20210724, end: 20210727
  10. ETORICOXIB [Concomitant]
     Active Substance: ETORICOXIB
     Route: 048
     Dates: start: 20220128, end: 20220204
  11. OMEPRAZOLE [Concomitant]
     Active Substance: OMEPRAZOLE
     Indication: Prophylaxis
     Route: 048
     Dates: start: 20220128, end: 20220204
  12. DICLOFENAC [Concomitant]
     Active Substance: DICLOFENAC
     Route: 061
     Dates: start: 20211029, end: 20211103
  13. KEMICETINE [Concomitant]
     Route: 047
     Dates: start: 20211031, end: 20211105
  14. IBUPROFEN [Concomitant]
     Active Substance: IBUPROFEN
     Route: 048
     Dates: start: 20210901, end: 20210905
  15. VALERIAN [Concomitant]
     Active Substance: VALERIAN
     Route: 048
     Dates: start: 20211115, end: 20211122
  16. GENTAMICIN [Concomitant]
     Active Substance: GENTAMICIN
     Route: 061
     Dates: start: 20211215, end: 20211222
  17. DICLOFENAC [Concomitant]
     Active Substance: DICLOFENAC
     Dosage: 360 OTHER
     Route: 061
     Dates: start: 20211228, end: 20211231
  18. THIOCOLCHICOSIDE [Concomitant]
     Active Substance: THIOCOLCHICOSIDE
     Route: 048
     Dates: start: 20220101, end: 20220107
  19. THIOCOLCHICOSIDE [Concomitant]
     Active Substance: THIOCOLCHICOSIDE
     Route: 048
     Dates: start: 20220313, end: 20220320
  20. ETORICOXIB [Concomitant]
     Active Substance: ETORICOXIB
     Indication: Rotator cuff syndrome
     Route: 048
     Dates: start: 20220201, end: 20220206
  21. PANTOPRAZOLE [Concomitant]
     Active Substance: PANTOPRAZOLE
     Indication: Prophylaxis
     Route: 048
     Dates: start: 20220201, end: 20220206
  22. PANTOPRAZOLE [Concomitant]
     Active Substance: PANTOPRAZOLE
     Route: 048
     Dates: start: 20221013
  23. AZITHROMYCIN [Concomitant]
     Active Substance: AZITHROMYCIN
     Indication: COVID-19
     Route: 048
     Dates: start: 20220211, end: 20220217
  24. ACETAMINOPHEN [Concomitant]
     Active Substance: ACETAMINOPHEN
     Indication: COVID-19
     Route: 048
     Dates: start: 20220211, end: 20220217
  25. NIMESULIDE [Concomitant]
     Active Substance: NIMESULIDE
     Indication: Sciatica
     Route: 048
     Dates: start: 20220211, end: 20220217
  26. DICLOFENAC SODIUM [Concomitant]
     Active Substance: DICLOFENAC SODIUM
     Indication: Pain in jaw
     Route: 048
  27. ACETAMINOPHEN [Concomitant]
     Active Substance: ACETAMINOPHEN
     Indication: COVID-19
     Route: 048
     Dates: start: 20220704, end: 20220705
  28. METHYLPREDNISOLONE [Concomitant]
     Active Substance: METHYLPREDNISOLONE
     Route: 048
     Dates: start: 20221013, end: 20221018
  29. METHYLPREDNISOLONE [Concomitant]
     Active Substance: METHYLPREDNISOLONE
     Route: 042
     Dates: start: 20221121, end: 20221121
  30. CEFIXIME [Concomitant]
     Active Substance: CEFIXIME
     Indication: Influenza
     Route: 048
     Dates: start: 20221212, end: 20221219
  31. CLARITHROMYCIN [Concomitant]
     Active Substance: CLARITHROMYCIN
     Indication: Influenza
     Route: 048
     Dates: start: 20221220, end: 20221227
  32. CETIRIZINE [Concomitant]
     Active Substance: CETIRIZINE HYDROCHLORIDE
     Route: 048
     Dates: start: 20221121, end: 20221121

REACTIONS (1)
  - Influenza [Recovered/Resolved]

NARRATIVE: CASE EVENT DATE: 20221211
